FAERS Safety Report 9312461 (Version 1)
Quarter: 2013Q2

REPORT INFORMATION
  Report Type: Spontaneous
  Country: US (occurrence: US)
  Receive Date: 20130528
  Receipt Date: 20130528
  Transmission Date: 20140414
  Serious: Yes (Other)
  Sender: FDA-Public Use
  Company Number: US-JNJFOC-20130514337

PATIENT
  Sex: Female
  Weight: 72.58 kg

DRUGS (1)
  1. INVEGA SUSTENNA [Suspect]
     Indication: SCHIZOPHRENIA
     Dosage: ONCE MONTHLY
     Route: 030
     Dates: start: 2012

REACTIONS (3)
  - Weight increased [Not Recovered/Not Resolved]
  - Hyperphagia [Recovered/Resolved]
  - Depressed mood [Not Recovered/Not Resolved]
